FAERS Safety Report 5498691-X (Version None)
Quarter: 2007Q4

REPORT INFORMATION
  Report Type: 
  Country: None (occurrence: None)
  Receive Date: 20071026
  Receipt Date: 20071018
  Transmission Date: 20080405
  Serious: Yes (Other)
  Sender: FDA-Public Use
  Company Number: CN-NOVOPROD-268660

PATIENT
  Age: 45 Year
  Sex: Female
  Weight: 65 kg

DRUGS (3)
  1. NOVOLOG MIX 70/30 [Suspect]
     Indication: DIABETES MELLITUS
     Dosage: 26 IU, QD
     Route: 058
     Dates: start: 20070131, end: 20070405
  2. NOVONORM [Concomitant]
     Dosage: 1 TAB, QD
     Route: 048
     Dates: start: 20070315, end: 20070402
  3. PIOGLITAZONE HCL [Concomitant]
     Dosage: 15 MG, QD
     Route: 048
     Dates: start: 20070315, end: 20070402

REACTIONS (2)
  - LYMPHADENOPATHY [None]
  - PAIN [None]
